FAERS Safety Report 4708891-1 (Version None)
Quarter: 2005Q3

REPORT INFORMATION
  Report Type: 
  Country: None (occurrence: None)
  Receive Date: 20050705
  Receipt Date: 20050616
  Transmission Date: 20060218
  Serious: Yes (Hospitalization)
  Sender: FDA-Public Use
  Company Number: 2002000316

PATIENT
  Age: 71 Year
  Sex: Female
  Weight: 83 kg

DRUGS (11)
  1. DOXAZOSIN (DOXAZOSIN) [Suspect]
     Indication: HYPERTENSION
     Dosage: 4 MG ( 4 MG, 1 IN 1 D), ORAL
     Route: 048
     Dates: start: 19991201, end: 19991203
  2. ATENOLOL [Suspect]
     Indication: HYPERTENSION
     Dosage: 50 MG (50 MG, 1 IN 1 D), ORAL
     Route: 048
     Dates: start: 19990414, end: 20000607
  3. BENDROFLUMETHIAZIDE/POTASSIUM CHLORIDE (VENDROFLUMETHIAZIDE, POTASSIUM [Suspect]
     Indication: HYPERLIPIDAEMIA
     Dosage: 10 MG (1 IN 1 D), ORAL
     Route: 048
     Dates: start: 19990414, end: 19991203
  4. IMOVANE (ZOPICLONE) [Concomitant]
  5. RENITEC COMP. (ENALAPRIL MALETE, HYDROCHLOROTHIAZIDE) [Concomitant]
  6. DIURAL (FUROSEMIDE) [Concomitant]
  7. VITAMIN B12 DEPOT (HYDROXOCOBALAMIN) [Concomitant]
  8. AFI-FOLSYRE (FOLIC ACID) [Concomitant]
  9. CLOTRIMAZOLE [Concomitant]
  10. DIFLUCAN [Concomitant]
  11. POTASSIUM CHLORIDE [Concomitant]

REACTIONS (12)
  - ANGINA UNSTABLE [None]
  - ANTINUCLEAR ANTIBODY POSITIVE [None]
  - CARDIAC DISORDER [None]
  - CYST [None]
  - DIZZINESS [None]
  - INTERVERTEBRAL DISC PROTRUSION [None]
  - POLYNEUROPATHY [None]
  - SICCA SYNDROME [None]
  - SPINAL DISORDER [None]
  - SPINAL OSTEOARTHRITIS [None]
  - SWELLING [None]
  - VASCULITIS NECROTISING [None]
